FAERS Safety Report 4551617-5 (Version None)
Quarter: 2005Q1

REPORT INFORMATION
  Report Type: 
  Country: None (occurrence: None)
  Receive Date: 20050110
  Receipt Date: 20041229
  Transmission Date: 20050727
  Serious: Yes (Death)
  Sender: FDA-Public Use
  Company Number: 2005000212

PATIENT
  Age: 57 Year
  Sex: Female

DRUGS (9)
  1. SPIRONOLACTONE [Suspect]
     Indication: ASCITES
     Dosage: 100 MG (100 MG EERY DAY)ORAL
     Route: 048
     Dates: start: 20031020, end: 20031113
  2. ENALAPRIL MALEATE [Suspect]
     Indication: HYPERTENSION
     Dosage: 30 MG (30 MG EVERY DAY) ORAL
     Route: 048
     Dates: end: 20031113
  3. FUROSEMID                   HEUMANN (FUROSEMIDE) [Suspect]
     Indication: ASCITES
     Dosage: 20 MG (20 MG EVERY DAY) ORAL
     Route: 048
     Dates: start: 20031020, end: 20031113
  4. TRAMADOL HCL [Suspect]
     Indication: ILL-DEFINED DISORDER
     Dosage: 50 MG PRN ORAL
     Route: 048
     Dates: end: 20031113
  5. PANTOPRAZOLE SODIUM                (PANTOPRAZOLE SODIUIM) [Suspect]
     Indication: GASTRITIS HAEMORRHAGIC
     Dosage: 40 MG (40 MG EVERY DAY) ORAL
     Route: 048
     Dates: start: 20031020, end: 20031113
  6. LACTULOSE [Concomitant]
  7. PHYTONADIONE [Concomitant]
  8. PARENTROVITE (ASCORBIC ACID, NICOTINAMIDE, PYRIDOXINE HYDROCHLORIDE, R [Concomitant]
  9. LEKOVIT CA      (CALCIUM CARBONATE, COLECALCIFEROL) [Concomitant]

REACTIONS (6)
  - CARDIOVASCULAR DISORDER [None]
  - MULTI-ORGAN FAILURE [None]
  - PULMONARY FUNCTION TEST DECREASED [None]
  - RENAL FAILURE [None]
  - STEVENS-JOHNSON SYNDROME [None]
  - TOXIC EPIDERMAL NECROLYSIS [None]
